FAERS Safety Report 6004195-8 (Version None)
Quarter: 2008Q4

REPORT INFORMATION
  Report Type: 
  Country: None (occurrence: None)
  Receive Date: 20081216
  Receipt Date: 20081216
  Transmission Date: 20090506
  Serious: Yes (Other)
  Sender: FDA-Public Use
  Company Number: None

PATIENT
  Age: 25 Year
  Sex: Female
  Weight: 139.2543 kg

DRUGS (2)
  1. REMICADE [Suspect]
     Indication: PSORIASIS
     Dosage: 4-6 BOTTLES EVERY 2 WEEKS IV DRIP 4-6 BOTTLES EVERY 4 WEEKS IV DRIP
     Route: 041
     Dates: start: 20080601, end: 20080831
  2. REMICADE [Suspect]
     Indication: PSORIATIC ARTHROPATHY
     Dosage: 4-6 BOTTLES EVERY 2 WEEKS IV DRIP 4-6 BOTTLES EVERY 4 WEEKS IV DRIP
     Route: 041
     Dates: start: 20080601, end: 20080831

REACTIONS (12)
  - ACTIVITIES OF DAILY LIVING IMPAIRED [None]
  - CONDITION AGGRAVATED [None]
  - DRUG INEFFECTIVE [None]
  - GAIT DISTURBANCE [None]
  - INFLAMMATION [None]
  - NAIL DISORDER [None]
  - NAIL HYPERTROPHY [None]
  - PAIN [None]
  - PSORIASIS [None]
  - SKIN FISSURES [None]
  - SKIN HAEMORRHAGE [None]
  - SWELLING [None]
